FAERS Safety Report 10204799 (Version 1)
Quarter: 2014Q2

REPORT INFORMATION
  Report Type: Spontaneous
  Country: US (occurrence: None)
  Receive Date: 20140527
  Receipt Date: 20140527
  Transmission Date: 20141212
  Serious: Yes (Hospitalization)
  Sender: FDA-Public Use
  Company Number: None

PATIENT
  Age: 36 Year
  Sex: Male
  Weight: 88 kg

DRUGS (1)
  1. ANTITHYMOCYTE GLOBULIN [Suspect]
     Indication: TRANSPLANT REJECTION
     Dosage: 125MG, ONCE, INTRAVENOUS
     Route: 042
     Dates: start: 20140523, end: 20140523

REACTIONS (2)
  - Transplant rejection [None]
  - Hypersensitivity [None]
